FAERS Safety Report 11777022 (Version 3)
Quarter: 2019Q3

REPORT INFORMATION
  Report Type: Report from Study
  Country: DE (occurrence: DE)
  Receive Date: 20151125
  Receipt Date: 20190812
  Transmission Date: 20191004
  Serious: Yes (Hospitalization, Other)
  Sender: FDA-Public Use
  Company Number: PHHY2015DE147254

PATIENT
  Age: 56 Year
  Sex: Female
  Weight: 58 kg

DRUGS (7)
  1. L-THYROXINE [Concomitant]
     Active Substance: LEVOTHYROXINE
     Indication: PRODUCT USED FOR UNKNOWN INDICATION
     Dosage: 0.5 DF, QD (1/2-0-0)
     Route: 065
  2. GILENYA [Suspect]
     Active Substance: FINGOLIMOD HYDROCHLORIDE
     Indication: RELAPSING-REMITTING MULTIPLE SCLEROSIS
     Dosage: 0.5 MG, QD
     Route: 048
     Dates: start: 20140108, end: 2015
  3. NEBIVOLOL. [Concomitant]
     Active Substance: NEBIVOLOL
     Indication: PRODUCT USED FOR UNKNOWN INDICATION
     Dosage: 0.5 DF, QD (1/2-0-0)
     Route: 065
  4. SINUPRET [Concomitant]
     Active Substance: HERBALS
     Indication: PRODUCT USED FOR UNKNOWN INDICATION
     Dosage: TID (1-1-1)
     Route: 065
  5. CANDESARTAN. [Concomitant]
     Active Substance: CANDESARTAN
     Indication: PRODUCT USED FOR UNKNOWN INDICATION
     Dosage: QD (1-0-0)
     Route: 065
  6. GILENYA [Suspect]
     Active Substance: FINGOLIMOD HYDROCHLORIDE
     Dosage: 0.5 MG, (0-0-1) MON, TUE, THU, FRI, SAT, PAUSE WED + SUN
     Route: 048
     Dates: start: 2015, end: 20180810
  7. DEKRISTOL [Concomitant]
     Active Substance: CHOLECALCIFEROL
     Indication: PRODUCT USED FOR UNKNOWN INDICATION
     Dosage: 20000 IU, EVERY 2 WEEKS ON SATURDAY (MOST RECENTLY 18 JUL 2015)
     Route: 065

REACTIONS (22)
  - Blood pressure increased [Unknown]
  - Depression [Recovering/Resolving]
  - Hyperhidrosis [Unknown]
  - Decreased appetite [Recovering/Resolving]
  - Gamma-glutamyltransferase increased [Unknown]
  - Depressive symptom [Unknown]
  - Dysaesthesia [Unknown]
  - Nasal congestion [Unknown]
  - Burning sensation [Unknown]
  - Weight decreased [Unknown]
  - Anxiety [Unknown]
  - Blood thyroid stimulating hormone decreased [Unknown]
  - Prescribed underdose [Unknown]
  - Mood altered [Recovering/Resolving]
  - Micturition urgency [Unknown]
  - Hyperaesthesia [Unknown]
  - Panic attack [Recovering/Resolving]
  - Insomnia [Recovering/Resolving]
  - Glycosylated haemoglobin increased [Unknown]
  - Palpitations [Unknown]
  - Central nervous system lesion [Unknown]
  - White blood cell count decreased [Unknown]

NARRATIVE: CASE EVENT DATE: 20150721
